FAERS Safety Report 25992746 (Version 1)
Quarter: 2025Q4

REPORT INFORMATION
  Report Type: Spontaneous
  Country: EU (occurrence: EU)
  Receive Date: 20251103
  Receipt Date: 20251103
  Transmission Date: 20260117
  Serious: Yes (Hospitalization, Other)
  Sender: JOHNSON AND JOHNSON
  Company Number: EU-BAYER-2025A143224

PATIENT
  Sex: Male

DRUGS (3)
  1. XARELTO [Suspect]
     Active Substance: RIVAROXABAN
     Indication: Atrial fibrillation
     Route: 048
  2. XARELTO [Suspect]
     Active Substance: RIVAROXABAN
     Indication: Product used for unknown indication
     Route: 048
  3. PHENPROCOUMON [Concomitant]
     Active Substance: PHENPROCOUMON
     Indication: Product used for unknown indication

REACTIONS (3)
  - Prostatic operation [Recovered/Resolved]
  - Atrial fibrillation [Unknown]
  - Epistaxis [Unknown]
